FAERS Safety Report 8219551-7 (Version None)
Quarter: 2012Q1

REPORT INFORMATION
  Report Type: 
  Country: None (occurrence: None)
  Receive Date: 20120319
  Receipt Date: 20120315
  Transmission Date: 20120608
  Serious: Yes (Death, Other)
  Sender: FDA-Public Use
  Company Number: PHHY2012US022902

PATIENT
  Age: 52 Year
  Sex: Male

DRUGS (4)
  1. MELPHALAN HYDROCHLORIDE [Concomitant]
     Dosage: 100 MG, UNK
  2. ALEMTUZUMAB [Concomitant]
     Dosage: 20 MG, UNK
  3. FLUDARABINE PHOSPHATE [Concomitant]
     Dosage: 24 MG/M2, UNK
  4. TACROLIMUS [Suspect]

REACTIONS (8)
  - MICROANGIOPATHY [None]
  - LETHARGY [None]
  - CEREBRAL HAEMORRHAGE [None]
  - MENTAL STATUS CHANGES [None]
  - APHASIA [None]
  - POSTERIOR REVERSIBLE ENCEPHALOPATHY SYNDROME [None]
  - HYPERTENSION [None]
  - AGITATION [None]
